FAERS Safety Report 10206830 (Version 2)
Quarter: 2014Q2

REPORT INFORMATION
  Report Type: Spontaneous
  Country: BR (occurrence: BR)
  Receive Date: 20140530
  Receipt Date: 20140623
  Transmission Date: 20141212
  Serious: Yes (Other)
  Sender: FDA-Public Use
  Company Number: BR-PFIZER INC-2014143597

PATIENT
  Sex: Female

DRUGS (2)
  1. GINO-FIBRASE [Suspect]
     Indication: WOUND
     Dosage: UNK
     Dates: start: 20140521
  2. CERAZETTE [Concomitant]
     Indication: CONTRACEPTION

REACTIONS (2)
  - Haemorrhage [Unknown]
  - Abdominal pain [Not Recovered/Not Resolved]
